FAERS Safety Report 7445013-0 (Version None)
Quarter: 2011Q2

REPORT INFORMATION
  Report Type: 
  Country: None (occurrence: None)
  Receive Date: 20110429
  Receipt Date: 20110414
  Transmission Date: 20111010
  Serious: Yes (Other)
  Sender: FDA-Public Use
  Company Number: PHHY2011CA30960

PATIENT
  Sex: Female

DRUGS (1)
  1. FEMARA [Suspect]
     Indication: BREAST CANCER
     Dosage: 2.5 MG, DAILY
     Route: 048
     Dates: start: 20110307, end: 20110413

REACTIONS (6)
  - PHARYNGEAL OEDEMA [None]
  - SALIVARY GLAND ENLARGEMENT [None]
  - SIALOADENITIS [None]
  - DRY EYE [None]
  - EYE PRURITUS [None]
  - DISCOMFORT [None]
